FAERS Safety Report 5318123-1 (Version None)
Quarter: 2007Q2

REPORT INFORMATION
  Report Type: 
  Country: None (occurrence: None)
  Receive Date: 20070507
  Receipt Date: 20070424
  Transmission Date: 20071010
  Serious: Yes (Other)
  Sender: FDA-Public Use
  Company Number: JP-ROCHE-493677

PATIENT
  Age: 53 Year
  Sex: Female

DRUGS (6)
  1. TAMIFLU [Suspect]
     Route: 048
     Dates: start: 20070411, end: 20070411
  2. TAMIFLU [Suspect]
     Route: 048
     Dates: start: 20070409, end: 20070409
  3. TAMIFLU [Suspect]
     Route: 048
     Dates: start: 20070410, end: 20070410
  4. DEPAKENE [Concomitant]
     Route: 048
     Dates: start: 19951113
  5. NICERGOLINE [Concomitant]
     Dosage: TRADE NAME REPORTED AS SALUMOSIN.
     Route: 048
  6. CERCINE [Concomitant]

REACTIONS (2)
  - PSYCHIATRIC SYMPTOM [None]
  - RESTLESSNESS [None]
